FAERS Safety Report 8108526-4 (Version None)
Quarter: 2012Q1

REPORT INFORMATION
  Report Type: 
  Country: None (occurrence: None)
  Receive Date: 20120202
  Receipt Date: 20120127
  Transmission Date: 20120608
  Serious: Yes (Other)
  Sender: FDA-Public Use
  Company Number: PHHO2012IT001891

PATIENT
  Sex: Female
  Weight: 102 kg

DRUGS (6)
  1. ARVENUM [Concomitant]
     Indication: VENOUS INSUFFICIENCY
     Dosage: 3 G, UNK
     Route: 048
     Dates: start: 20111101
  2. FTY [Suspect]
     Indication: RELAPSING-REMITTING MULTIPLE SCLEROSIS
     Dosage: 0.5 MG, UNK
     Route: 048
     Dates: start: 20110729, end: 20120118
  3. FTY [Suspect]
     Dosage: 0.5 MG, UNK
     Route: 048
     Dates: start: 20120119
  4. XANAX [Concomitant]
     Indication: DEPRESSION
     Dosage: 0.25 MG, UNK
     Route: 048
     Dates: start: 20081023
  5. LEVOTHYROXINE SODIUM [Concomitant]
     Indication: THYROIDITIS
     Dosage: 75 MG, UNK
     Route: 048
     Dates: start: 20050714
  6. DONA [Concomitant]
     Indication: OSTEOARTHRITIS
     Dosage: 200 MG, UNK
     Route: 030
     Dates: start: 20111101

REACTIONS (2)
  - TROPONIN T INCREASED [None]
  - CHEST PAIN [None]
